FAERS Safety Report 6418128-3 (Version None)
Quarter: 2009Q4

REPORT INFORMATION
  Report Type: 
  Country: None (occurrence: None)
  Receive Date: 20091028
  Receipt Date: 20091021
  Transmission Date: 20100525
  Serious: No
  Sender: FDA-Public Use
  Company Number: US-BAXTER-2009BH016319

PATIENT
  Age: 55 Year
  Sex: Female

DRUGS (3)
  1. HEPARIN SODIUM INJECTION [Suspect]
     Indication: INTRAVENOUS CATHETER MANAGEMENT
     Route: 042
  2. HEPARIN SODIUM INJECTION [Suspect]
     Route: 042
  3. ANTIBIOTICS [Concomitant]
     Indication: DRUG USE FOR UNKNOWN INDICATION
     Route: 042

REACTIONS (7)
  - BLOOD PRESSURE DECREASED [None]
  - DYSPEPSIA [None]
  - FEELING HOT [None]
  - INDURATION [None]
  - MUSCLE SPASMS [None]
  - NAUSEA [None]
  - SKIN DISCOLOURATION [None]
